FAERS Safety Report 25150586 (Version 5)
Quarter: 2025Q2

REPORT INFORMATION
  Report Type: Spontaneous
  Country: FI (occurrence: FI)
  Receive Date: 20250402
  Receipt Date: 20250506
  Transmission Date: 20250717
  Serious: Yes (Hospitalization, Other)
  Sender: TEVA
  Company Number: FI-TEVA-VS-3316353

PATIENT
  Age: 55 Year
  Sex: Female

DRUGS (1)
  1. FREMANEZUMAB [Suspect]
     Active Substance: FREMANEZUMAB
     Indication: Migraine
     Route: 058

REACTIONS (1)
  - Wound necrosis [Recovered/Resolved]

NARRATIVE: CASE EVENT DATE: 20231219
